FAERS Safety Report 16938908 (Version 1)
Quarter: 2019Q4

REPORT INFORMATION
  Report Type: Spontaneous
  Country: US (occurrence: US)
  Receive Date: 20190828
  Receipt Date: 20190828
  Transmission Date: 20200122
  Serious: No
  Sender: FDA-Public Use
  Company Number: None

PATIENT
  Age: 50 Year
  Sex: Female

DRUGS (6)
  1. DAYSEE [Concomitant]
     Active Substance: ETHINYL ESTRADIOL\LEVONORGESTREL
  2. ALMOVIG [Concomitant]
  3. BUPROPRION [Concomitant]
     Active Substance: BUPROPION
  4. DULOXETINE. [Concomitant]
     Active Substance: DULOXETINE
  5. SUMATRIPTAN. [Concomitant]
     Active Substance: SUMATRIPTAN
  6. CAPECITABINE TAB 500MG [Suspect]
     Active Substance: CAPECITABINE
     Indication: BREAST CANCER
     Route: 048
     Dates: start: 201907

REACTIONS (2)
  - Palmar-plantar erythrodysaesthesia syndrome [None]
  - Mucosal inflammation [None]

NARRATIVE: CASE EVENT DATE: 20190823
